FAERS Safety Report 5397216-7 (Version None)
Quarter: 2007Q3

REPORT INFORMATION
  Report Type: 
  Country: None (occurrence: None)
  Receive Date: 20070725
  Receipt Date: 20070713
  Transmission Date: 20080115
  Serious: Yes (Death)
  Sender: FDA-Public Use
  Company Number: FR-PFIZER INC-2007058807

PATIENT
  Sex: Female

DRUGS (8)
  1. ADRIBLASTINE [Suspect]
     Indication: LIPOSARCOMA
     Dosage: FREQ:CYCLIC
     Route: 042
     Dates: start: 20061025, end: 20070205
  2. HOLOXAN [Suspect]
     Indication: LIPOSARCOMA
     Dosage: FREQ:CYCLIC
     Route: 042
     Dates: start: 20061025, end: 20070205
  3. NEULASTA [Suspect]
     Indication: PROPHYLAXIS
     Dosage: FREQ:CYCLIC
     Route: 058
     Dates: start: 20061029, end: 20070209
  4. EMEND [Suspect]
     Indication: VOMITING
     Route: 048
     Dates: start: 20061116, end: 20070210
  5. ZOFRAN [Concomitant]
  6. SOLU-MEDROL [Concomitant]
  7. PRIMPERAN INJ [Concomitant]
  8. XANAX [Concomitant]

REACTIONS (1)
  - SUDDEN DEATH [None]
